FAERS Safety Report 9822458 (Version 1)
Quarter: 2014Q1

REPORT INFORMATION
  Report Type: Spontaneous
  Country: CA (occurrence: CA)
  Receive Date: 20140116
  Receipt Date: 20140116
  Transmission Date: 20141002
  Serious: Yes (Other)
  Sender: FDA-Public Use
  Company Number: CA-ASTRAZENECA-2014SE01643

PATIENT
  Sex: Male

DRUGS (2)
  1. SEROQUEL [Suspect]
     Route: 048
  2. DESYREL [Suspect]
     Route: 065

REACTIONS (3)
  - Muscle tightness [Unknown]
  - Pain [Unknown]
  - Extrapyramidal disorder [Unknown]
